FAERS Safety Report 16103746 (Version 2)
Quarter: 2019Q2

REPORT INFORMATION
  Report Type: Report from Study
  Country: GB (occurrence: GB)
  Receive Date: 20190322
  Receipt Date: 20190406
  Transmission Date: 20190711
  Serious: Yes (Life-Threatening, Hospitalization)
  Sender: FDA-Public Use
  Company Number: GB-CELLTRION INC.-2019GB019453

PATIENT

DRUGS (14)
  1. TRUXIMA [Suspect]
     Active Substance: RITUXIMAB-ABBS
     Indication: DIFFUSE LARGE B-CELL LYMPHOMA REFRACTORY
     Dosage: 1000 MG (375 MG/M2)
     Route: 042
     Dates: start: 20181119, end: 20181119
  2. FLUCONAZOLE. [Concomitant]
     Active Substance: FLUCONAZOLE
     Dosage: 100 MG
  3. AMILORIDE [Concomitant]
     Active Substance: AMILORIDE
     Dosage: 10 MG
  4. IVE [IFOSFAMIDE] [Suspect]
     Active Substance: IFOSFAMIDE
  5. IVE [EPIRUBICIN] [Suspect]
     Active Substance: EPIRUBICIN
     Indication: DIFFUSE LARGE B-CELL LYMPHOMA REFRACTORY
     Dosage: UNK
     Route: 065
  6. DOXAZOCIN [Concomitant]
     Active Substance: DOXAZOSIN MESYLATE
     Dosage: 8 MG
  7. MOXONIDINE [Concomitant]
     Active Substance: MOXONIDINE
     Dosage: 200 MICROGRAM
  8. TRUXIMA [Suspect]
     Active Substance: RITUXIMAB-ABBS
     Dosage: 1000 MG (375 MG/M2)
     Route: 042
     Dates: start: 20181212, end: 20181212
  9. LACIDIPINE [Concomitant]
     Active Substance: LACIDIPINE
     Dosage: 6 MG
  10. ATENOLOL. [Concomitant]
     Active Substance: ATENOLOL
     Dosage: 100 MG
  11. LOSARTAN. [Concomitant]
     Active Substance: LOSARTAN
     Dosage: 100 MG
  12. IVE [ETOPOSIDE] [Suspect]
     Active Substance: ETOPOSIDE
  13. FILGRASTIM [Concomitant]
     Active Substance: FILGRASTIM
     Dosage: 480 MG
  14. GTN [Concomitant]
     Active Substance: NITROGLYCERIN
     Dosage: SPRAY AS REQUIRED

REACTIONS (11)
  - Neutropenic sepsis [Recovered/Resolved]
  - Clostridium difficile infection [Recovered/Resolved]
  - Hypokalaemia [Recovering/Resolving]
  - Syncope [Recovered/Resolved]
  - Primary hyperaldosteronism [Unknown]
  - Klebsiella bacteraemia [Recovered/Resolved]
  - Underdose [Unknown]
  - Pancytopenia [Recovering/Resolving]
  - Orthostatic hypotension [Unknown]
  - Clostridium difficile colitis [Not Recovered/Not Resolved]
  - Hypocalcaemia [Recovering/Resolving]

NARRATIVE: CASE EVENT DATE: 20181128
